FAERS Safety Report 17190251 (Version 1)
Quarter: 2019Q4

REPORT INFORMATION
  Report Type: Spontaneous
  Country: US (occurrence: US)
  Receive Date: 20191223
  Receipt Date: 20191223
  Transmission Date: 20200122
  Serious: No
  Sender: FDA-Public Use
  Company Number: US-ASTRAZENECA-2019SF80591

PATIENT
  Age: 45 Year
  Sex: Female

DRUGS (12)
  1. CLARITIN [Concomitant]
     Active Substance: LORATADINE
  2. BUPROPION. [Concomitant]
     Active Substance: BUPROPION
  3. PEPCID [Concomitant]
     Active Substance: FAMOTIDINE
  4. SEROQUEL [Suspect]
     Active Substance: QUETIAPINE FUMARATE
     Indication: PRODUCT USED FOR UNKNOWN INDICATION
     Route: 048
  5. LEVOTHYROXINE. [Concomitant]
     Active Substance: LEVOTHYROXINE
  6. NORGESTIMATE AND ETHINYL ESTRADIOL [Concomitant]
     Active Substance: ETHINYL ESTRADIOL\NORGESTIMATE
  7. SENNA [Concomitant]
     Active Substance: SENNA LEAF\SENNOSIDES\SENNOSIDES A AND B
  8. KORLYM [Suspect]
     Active Substance: MIFEPRISTONE
     Indication: CUSHING^S SYNDROME
     Route: 048
     Dates: start: 20191024
  9. ABILIFY [Suspect]
     Active Substance: ARIPIPRAZOLE
     Indication: PRODUCT USED FOR UNKNOWN INDICATION
     Route: 065
  10. VITAMIN D [Concomitant]
     Active Substance: VITAMIN D NOS
  11. KLONOPIN [Concomitant]
     Active Substance: CLONAZEPAM
  12. CITRACAL + D [Concomitant]
     Active Substance: CALCIUM CITRATE\VITAMIN D

REACTIONS (2)
  - Drug interaction [Unknown]
  - Withdrawal syndrome [Unknown]

NARRATIVE: CASE EVENT DATE: 2019
